FAERS Safety Report 8906940 (Version 3)
Quarter: 2014Q1

REPORT INFORMATION
  Report Type: Spontaneous
  Country: US (occurrence: US)
  Receive Date: 20121114
  Receipt Date: 20140312
  Transmission Date: 20141002
  Serious: Yes (Hospitalization, Other)
  Sender: FDA-Public Use
  Company Number: US-BAYER-2012-116582

PATIENT
  Age: 39 Year
  Sex: Female
  Weight: 53.06 kg

DRUGS (3)
  1. YASMIN [Suspect]
     Dosage: UNK
     Dates: start: 2003, end: 2010
  2. OCELLA [Suspect]
     Dosage: UNK
     Dates: start: 2003, end: 2010
  3. IBUPROFEN [Concomitant]
     Dosage: UNK
     Dates: start: 20101219

REACTIONS (9)
  - Cholecystitis chronic [None]
  - Cholecystectomy [None]
  - Injury [None]
  - Pain [None]
  - General physical health deterioration [None]
  - Anxiety [None]
  - Emotional distress [None]
  - Anhedonia [None]
  - Pain [None]
